FAERS Safety Report 5078866-4 (Version None)
Quarter: 2006Q3

REPORT INFORMATION
  Report Type: 
  Country: None (occurrence: None)
  Receive Date: 20060814
  Receipt Date: 20060803
  Transmission Date: 20061208
  Serious: Yes (Hospitalization)
  Sender: FDA-Public Use
  Company Number: PHRM2006FR02278

PATIENT
  Sex: Female

DRUGS (2)
  1. TEGRETOL [Suspect]
     Route: 064
  2. RUDIVAX [Suspect]
     Route: 064

REACTIONS (4)
  - BODY HEIGHT BELOW NORMAL [None]
  - DRUG EXPOSURE DURING PREGNANCY [None]
  - HEAD CIRCUMFERENCE ABNORMAL [None]
  - SMALL FOR DATES BABY [None]
